FAERS Safety Report 15571423 (Version 1)
Quarter: 2018Q4

REPORT INFORMATION
  Report Type: Spontaneous
  Country: DE (occurrence: DE)
  Receive Date: 20181031
  Receipt Date: 20181031
  Transmission Date: 20190205
  Serious: Yes (Other)
  Sender: FDA-Public Use
  Company Number: DE-BAYER-2018-199675

PATIENT
  Age: 44 Year
  Sex: Female

DRUGS (1)
  1. MIRENA [Suspect]
     Active Substance: LEVONORGESTREL
     Dosage: 20 MCG/24HR, CONT
     Route: 015
     Dates: start: 201802

REACTIONS (6)
  - Lipoedema [None]
  - Loss of libido [None]
  - Rheumatic disorder [None]
  - Aphasia [None]
  - Weight increased [None]
  - Mood swings [None]

NARRATIVE: CASE EVENT DATE: 201807
